FAERS Safety Report 18062592 (Version 1)
Quarter: 2020Q3

REPORT INFORMATION
  Report Type: Spontaneous
  Country: FR (occurrence: FR)
  Receive Date: 20200724
  Receipt Date: 20200724
  Transmission Date: 20201103
  Serious: Yes (Death)
  Sender: FDA-Public Use
  Company Number: FR-TEVA-2020-FR-1803941

PATIENT
  Age: 84 Year
  Sex: Male
  Weight: 58 kg

DRUGS (11)
  1. YERVOY [Suspect]
     Active Substance: IPILIMUMAB
     Indication: CLEAR CELL RENAL CELL CARCINOMA
     Dosage: 55 MG
     Route: 041
     Dates: start: 20200528, end: 20200528
  2. OPDIVO [Suspect]
     Active Substance: NIVOLUMAB
     Indication: CLEAR CELL RENAL CELL CARCINOMA
     Dosage: 172 MG
     Route: 041
     Dates: start: 20200528, end: 20200528
  3. PARACETAMOL [Concomitant]
     Active Substance: ACETAMINOPHEN
     Dosage: 3 GM
     Route: 048
  4. AMLODIPINE (BESILATE D) [Concomitant]
     Active Substance: AMLODIPINE BESYLATE
     Indication: HYPERTENSION
     Dosage: 5 MG
     Route: 048
     Dates: start: 20200519, end: 20200608
  5. NEBIVOLOL (CHLORHYDRATE DE) [Concomitant]
     Active Substance: NEBIVOLOL
     Indication: HYPERTENSION
     Dosage: 0.5 MG
     Route: 048
  6. OFLOXACINE [Suspect]
     Active Substance: OFLOXACIN
     Indication: PYREXIA
     Dosage: 400 MG
     Route: 048
     Dates: start: 20200605
  7. AUGMENTIN [Suspect]
     Active Substance: AMOXICILLIN\CLAVULANATE POTASSIUM
     Indication: PYREXIA
     Dosage: 2 GM
     Route: 048
     Dates: start: 20200605
  8. SERESTA 10 MG, COMPRIME [Concomitant]
     Active Substance: OXAZEPAM
     Indication: ANXIETY
     Route: 048
  9. LASILIX FAIBLE 20 MG, COMPRIME [Concomitant]
     Active Substance: FUROSEMIDE
     Indication: HYPERTENSION
     Dosage: 20 MG
     Route: 048
     Dates: start: 20200519, end: 20200608
  10. LOVENOX [Concomitant]
     Active Substance: ENOXAPARIN SODIUM
     Dosage: 0.4 ML
     Route: 058
  11. MACROGOL 4000 [Concomitant]
     Active Substance: POLYETHYLENE GLYCOL 4000
     Route: 048

REACTIONS (1)
  - Haemolytic anaemia [Fatal]

NARRATIVE: CASE EVENT DATE: 20200608
